FAERS Safety Report 22938314 (Version 5)
Quarter: 2024Q3

REPORT INFORMATION
  Report Type: Spontaneous
  Country: DE (occurrence: DE)
  Receive Date: 20230913
  Receipt Date: 20240828
  Transmission Date: 20241017
  Serious: Yes (Other)
  Sender: AUROBINDO
  Company Number: DE-JNJFOC-20230859947

PATIENT
  Age: 8 Decade
  Weight: 90 kg

DRUGS (43)
  1. BORTEZOMIB [Suspect]
     Active Substance: BORTEZOMIB
     Indication: Plasma cell myeloma
     Dosage: 1.3 MG/M2
     Route: 065
  2. BORTEZOMIB [Suspect]
     Active Substance: BORTEZOMIB
     Dosage: 1.3 MILLIGRAM/SQ. METER
     Route: 065
     Dates: start: 20230516
  3. BORTEZOMIB [Suspect]
     Active Substance: BORTEZOMIB
     Dosage: 1.3 MILLIGRAM/SQ. METER
     Route: 065
     Dates: start: 20230612
  4. BORTEZOMIB [Suspect]
     Active Substance: BORTEZOMIB
     Dosage: 1.3 MILLIGRAM/SQ. METER (BRIDGING THERAPY, THIRD CYCLE)
     Route: 065
     Dates: start: 20230704
  5. BORTEZOMIB [Suspect]
     Active Substance: BORTEZOMIB
     Dosage: 1.3 MILLIGRAM/SQ. METER (BRIDGING THERAPY)
     Route: 065
     Dates: start: 20230520
  6. BORTEZOMIB [Suspect]
     Active Substance: BORTEZOMIB
     Dosage: 1.3 MILLIGRAM/SQ. METER (BRIDGING THERAPY, SECOND CYCLE)
     Route: 065
     Dates: start: 20230613
  7. BORTEZOMIB [Suspect]
     Active Substance: BORTEZOMIB
     Dosage: 1.3 MILLIGRAM/SQ. METER (BRIDGING THERAPY)
     Route: 065
     Dates: start: 20230517
  8. DOXORUBICIN [Suspect]
     Active Substance: DOXORUBICIN
     Indication: Plasma cell myeloma
     Dosage: 9 MILLIGRAM/SQ. METER
     Route: 065
     Dates: start: 20230516
  9. DOXORUBICIN [Suspect]
     Active Substance: DOXORUBICIN
     Dosage: 9 MILLIGRAM/SQ. METER
     Route: 065
     Dates: start: 20230612
  10. DOXORUBICIN [Suspect]
     Active Substance: DOXORUBICIN
     Dosage: 9 MILLIGRAM/SQ. METER
     Route: 065
     Dates: start: 20230704
  11. DOXORUBICIN [Suspect]
     Active Substance: DOXORUBICIN
     Dosage: 6 MILLIGRAM/SQ. METER
     Route: 065
     Dates: start: 20230804
  12. DOXORUBICIN [Suspect]
     Active Substance: DOXORUBICIN
     Dosage: 9 MILLIGRAM/SQ. METER (BRIDGING THERAPY, C1)
     Route: 065
     Dates: start: 20230517, end: 20230520
  13. DOXORUBICIN [Suspect]
     Active Substance: DOXORUBICIN
     Dosage: 9 MILLIGRAM/SQ. METER (BRIDGING THERAPY, THIRD CYCLE)
     Route: 065
     Dates: start: 20230706
  14. DOXORUBICIN [Suspect]
     Active Substance: DOXORUBICIN
     Dosage: 9 MILLIGRAM/SQ. METER (BRIDGING THERAPY, THIRD CYCLE)
     Route: 065
     Dates: start: 20230705
  15. DOXORUBICIN [Suspect]
     Active Substance: DOXORUBICIN
     Dosage: 9 MILLIGRAM/SQ. METER (BRIDGING THERAPY, THIRD CYCLE)
     Route: 065
     Dates: start: 20230707
  16. DOXORUBICIN [Suspect]
     Active Substance: DOXORUBICIN
     Dosage: 9 MILLIGRAM/SQ. METER (BRIDGING THERAPY, SECOND CYCLE)
     Route: 065
     Dates: start: 20230613
  17. DOXORUBICIN [Suspect]
     Active Substance: DOXORUBICIN
     Dosage: 6 MILLIGRAM/SQ. METER (BRIDGING THERAPY, FOURTH CYCLE)
     Route: 065
     Dates: start: 20230805, end: 20230808
  18. DOXORUBICIN [Suspect]
     Active Substance: DOXORUBICIN
     Dosage: 9 MILLIGRAM/SQ. METER (BRIDGING THERAPY, SECOND CYCLE)
     Route: 065
     Dates: start: 20230615
  19. DOXORUBICIN [Suspect]
     Active Substance: DOXORUBICIN
     Dosage: 9 MILLIGRAM/SQ. METER (BRIDGING THERAPY, SECOND CYCLE)
     Route: 065
     Dates: start: 20230614
  20. DARZALEX [Suspect]
     Active Substance: DARATUMUMAB
     Indication: Plasma cell myeloma
     Dosage: 16 MILLIGRAM/SQ. METER
     Route: 065
     Dates: start: 20230516
  21. DARZALEX [Suspect]
     Active Substance: DARATUMUMAB
     Dosage: 16 MILLIGRAM/SQ. METER
     Route: 065
     Dates: start: 20230612
  22. DARZALEX [Suspect]
     Active Substance: DARATUMUMAB
     Dosage: 16 MILLIGRAM/SQ. METER (BRIDGING THERAPY, SECOND CYCLE)
     Route: 065
     Dates: start: 20230704
  23. DARZALEX [Suspect]
     Active Substance: DARATUMUMAB
     Dosage: 16 MILLIGRAM/SQ. METER (BRIDGING THERAPY, SECOND CYCLE)
     Route: 065
     Dates: start: 20230707
  24. DARZALEX [Suspect]
     Active Substance: DARATUMUMAB
     Dosage: 16 MILLIGRAM/SQ. METER (BRIDGING THERAPY, SECOND CYCLE)
     Route: 065
     Dates: start: 20230615
  25. DARZALEX [Suspect]
     Active Substance: DARATUMUMAB
     Dosage: 16 MILLIGRAM/SQ. METER
     Route: 065
     Dates: start: 20230521
  26. DEXAMETHASONE [Suspect]
     Active Substance: DEXAMETHASONE
     Indication: Plasma cell myeloma
     Dosage: 20 MILLIGRAM
     Route: 065
  27. DEXAMETHASONE [Suspect]
     Active Substance: DEXAMETHASONE
     Dosage: 20 MILLIGRAM
     Route: 065
     Dates: start: 20230516
  28. DEXAMETHASONE [Suspect]
     Active Substance: DEXAMETHASONE
     Dosage: 20 MILLIGRAM (BRIDGING THERAPY, SECOND CYCLE)
     Route: 065
     Dates: start: 20230612
  29. DEXAMETHASONE [Suspect]
     Active Substance: DEXAMETHASONE
     Dosage: 20 MILLIGRAM
     Route: 065
     Dates: start: 20230704
  30. DEXAMETHASONE [Suspect]
     Active Substance: DEXAMETHASONE
     Dosage: 20 MILLIGRAM
     Route: 065
     Dates: start: 20230520
  31. DEXAMETHASONE [Suspect]
     Active Substance: DEXAMETHASONE
     Dosage: 20 MILLIGRAM
     Route: 065
     Dates: start: 20230517
  32. DEXAMETHASONE [Suspect]
     Active Substance: DEXAMETHASONE
     Dosage: 20 MILLIGRAM (BRIDGING THERAPY, THIRD CYCLE)
     Route: 065
     Dates: start: 20230706
  33. DEXAMETHASONE [Suspect]
     Active Substance: DEXAMETHASONE
     Dosage: 20 MILLIGRAM
     Route: 065
     Dates: start: 20230521
  34. DEXAMETHASONE [Suspect]
     Active Substance: DEXAMETHASONE
     Dosage: 20 MILLIGRAM (BRIDGING THERAPY, THIRD CYCLE)
     Route: 065
     Dates: start: 20230705
  35. DEXAMETHASONE [Suspect]
     Active Substance: DEXAMETHASONE
     Dosage: 20 MILLIGRAM (BRIDGING THERAPY, SECOND CYCLE)
     Route: 065
     Dates: start: 20230613
  36. DEXAMETHASONE [Suspect]
     Active Substance: DEXAMETHASONE
     Dosage: 20 MILLIGRAM
     Route: 065
     Dates: start: 20230518
  37. DEXAMETHASONE [Suspect]
     Active Substance: DEXAMETHASONE
     Dosage: 20 MILLIGRAM (BRIDGING THERAPY, SECOND CYCLE)
     Route: 065
     Dates: start: 20230614
  38. POMALIDOMIDE [Suspect]
     Active Substance: POMALIDOMIDE
     Indication: Plasma cell myeloma
     Dosage: 4 MILLIGRAM
     Route: 065
     Dates: start: 20230512
  39. POMALIDOMIDE [Suspect]
     Active Substance: POMALIDOMIDE
     Dosage: 4 MILLIGRAM
     Route: 065
     Dates: start: 20230516
  40. POMALIDOMIDE [Suspect]
     Active Substance: POMALIDOMIDE
     Dosage: 2 MILLIGRAM
     Route: 065
     Dates: start: 20230704
  41. POMALIDOMIDE [Suspect]
     Active Substance: POMALIDOMIDE
     Dosage: 4 MILLIGRAM
     Route: 065
     Dates: start: 20230517, end: 20230530
  42. POMALIDOMIDE [Suspect]
     Active Substance: POMALIDOMIDE
     Dosage: 2 MILLIGRAM (BRIDGING THERAPY, THIRD CYCLE)
     Route: 065
     Dates: start: 20230705, end: 20230707
  43. POMALIDOMIDE [Suspect]
     Active Substance: POMALIDOMIDE
     Dosage: 4 MILLIGRAM (BRIDGING THERAPY, SECOND CYCLE)
     Route: 065
     Dates: start: 20230513, end: 20230615

REACTIONS (2)
  - Plasma cell myeloma [Unknown]
  - Intentional product use issue [Unknown]

NARRATIVE: CASE EVENT DATE: 20230101
